FAERS Safety Report 17434539 (Version 1)
Quarter: 2020Q1

REPORT INFORMATION
  Report Type: Spontaneous
  Country: US (occurrence: US)
  Receive Date: 20200203
  Receipt Date: 20200203
  Transmission Date: 20200409
  Serious: Yes (Other)
  Sender: FDA-Public Use
  Company Number: None

PATIENT
  Age: 71 Year
  Sex: Male
  Weight: 90 kg

DRUGS (2)
  1. ATORVASTATIN (ATORVASTATIN CA 80MG TAB0 [Suspect]
     Active Substance: ATORVASTATIN
     Indication: CARDIOVASCULAR EVENT PROPHYLAXIS
     Route: 048
     Dates: start: 20180605, end: 20191121
  2. ATORVASTATIN (ATORVASTATIN CA 80MG TAB0 [Suspect]
     Active Substance: ATORVASTATIN
     Indication: HYPERLIPIDAEMIA
     Route: 048
     Dates: start: 20180605, end: 20191121

REACTIONS (3)
  - Muscular weakness [None]
  - Liver function test increased [None]
  - Myositis [None]

NARRATIVE: CASE EVENT DATE: 20191220
